FAERS Safety Report 6616790-3 (Version None)
Quarter: 2010Q1

REPORT INFORMATION
  Report Type: 
  Country: None (occurrence: None)
  Receive Date: 20100301
  Receipt Date: 20100221
  Transmission Date: 20100710
  Serious: Yes (Hospitalization)
  Sender: FDA-Public Use
  Company Number: 2009SP005002

PATIENT
  Age: 40 Year
  Sex: Female

DRUGS (8)
  1. PEG-INTRON [Suspect]
     Indication: HEPATITIS C
     Dosage: SC ; SC ; SC ; SC ; SC
     Route: 058
     Dates: start: 20081202, end: 20090122
  2. PEG-INTRON [Suspect]
     Indication: HEPATITIS C
     Dosage: SC ; SC ; SC ; SC ; SC
     Route: 058
     Dates: start: 20090305
  3. PEG-INTRON [Suspect]
     Indication: HEPATITIS C
     Dosage: SC ; SC ; SC ; SC ; SC
     Route: 058
     Dates: start: 20091007
  4. PEG-INTRON [Suspect]
     Indication: HEPATITIS C
     Dosage: SC ; SC ; SC ; SC ; SC
     Route: 058
     Dates: start: 20100211
  5. RIBAVIRIN [Suspect]
     Indication: HEPATITIS C
     Dosage: PO ; PO ; PO ; PO
     Route: 048
     Dates: start: 20081202, end: 20090122
  6. RIBAVIRIN [Suspect]
     Indication: HEPATITIS C
     Dosage: PO ; PO ; PO ; PO
     Route: 048
     Dates: start: 20090305
  7. RIBAVIRIN [Suspect]
     Indication: HEPATITIS C
     Dosage: PO ; PO ; PO ; PO
     Route: 048
     Dates: start: 20091007
  8. RIBAVIRIN [Suspect]
     Indication: HEPATITIS C
     Dosage: PO ; PO ; PO ; PO
     Route: 048
     Dates: start: 20100211

REACTIONS (16)
  - ALOPECIA [None]
  - AMMONIA INCREASED [None]
  - BLOOD POTASSIUM DECREASED [None]
  - COMA [None]
  - CONFUSIONAL STATE [None]
  - CYSTITIS [None]
  - FALL [None]
  - FATIGUE [None]
  - HEAD INJURY [None]
  - HEADACHE [None]
  - HEPATIC ENZYME INCREASED [None]
  - MUSCLE DISORDER [None]
  - PAIN IN EXTREMITY [None]
  - PNEUMONIA [None]
  - SKIN INFECTION [None]
  - VOMITING [None]
